FAERS Safety Report 26117908 (Version 1)
Quarter: 2025Q4

REPORT INFORMATION
  Report Type: Spontaneous
  Country: MX (occurrence: MX)
  Receive Date: 20251203
  Receipt Date: 20251203
  Transmission Date: 20260117
  Serious: Yes (Death, Life-Threatening, Other)
  Sender: BRACCO
  Company Number: MX-BRACCO-2025MX08369

PATIENT
  Age: 74 Year
  Sex: Female
  Weight: 120 kg

DRUGS (2)
  1. IOPAMIRO [Suspect]
     Active Substance: IOPAMIDOL
     Indication: Computerised tomogram heart
     Dosage: 100 ML, SINGLE
     Dates: start: 20251126, end: 20251126
  2. AMLODIPINE BESYLATE\OLMESARTAN MEDOXOMIL [Concomitant]
     Active Substance: AMLODIPINE BESYLATE\OLMESARTAN MEDOXOMIL
     Dosage: 1 DF, QD

REACTIONS (2)
  - Anaphylactic shock [Fatal]
  - Pulse absent [Fatal]

NARRATIVE: CASE EVENT DATE: 20251126
